FAERS Safety Report 15457866 (Version 2)
Quarter: 2018Q4

REPORT INFORMATION
  Report Type: Report from Study
  Country: None (occurrence: US)
  Receive Date: 20181003
  Receipt Date: 20181230
  Transmission Date: 20190204
  Serious: Yes (Other)
  Sender: FDA-Public Use
  Company Number: US-ABBVIE-18K-163-2301308-00

PATIENT
  Age: 48 Year
  Sex: Female

DRUGS (3)
  1. HUMIRA [Suspect]
     Active Substance: ADALIMUMAB
     Route: 058
     Dates: start: 2018, end: 2018
  2. HUMIRA [Suspect]
     Active Substance: ADALIMUMAB
     Indication: RHEUMATOID ARTHRITIS
     Route: 058
     Dates: start: 20180319, end: 201805
  3. HUMIRA [Suspect]
     Active Substance: ADALIMUMAB
     Route: 058
     Dates: start: 2018, end: 20181205

REACTIONS (25)
  - Loss of personal independence in daily activities [Not Recovered/Not Resolved]
  - Depression [Unknown]
  - Musculoskeletal pain [Unknown]
  - Peripheral swelling [Not Recovered/Not Resolved]
  - Pain [Recovering/Resolving]
  - Drug ineffective [Not Recovered/Not Resolved]
  - Joint range of motion decreased [Recovering/Resolving]
  - Fatigue [Not Recovered/Not Resolved]
  - Arthralgia [Recovering/Resolving]
  - Erythema [Unknown]
  - Fungal infection [Unknown]
  - Discomfort [Not Recovered/Not Resolved]
  - Rheumatoid arthritis [Unknown]
  - Gait disturbance [Not Recovered/Not Resolved]
  - Sinus congestion [Unknown]
  - Anxiety [Unknown]
  - Neuralgia [Unknown]
  - Nasopharyngitis [Unknown]
  - Impaired work ability [Unknown]
  - Joint swelling [Not Recovered/Not Resolved]
  - Pain in extremity [Unknown]
  - Exostosis [Not Recovered/Not Resolved]
  - Joint stiffness [Recovering/Resolving]
  - Injection site bruising [Recovered/Resolved]
  - Back pain [Unknown]

NARRATIVE: CASE EVENT DATE: 2018
